FAERS Safety Report 20188747 (Version 3)
Quarter: 2022Q1

REPORT INFORMATION
  Report Type: Report from Study
  Country: US (occurrence: US)
  Receive Date: 20211215
  Receipt Date: 20220317
  Transmission Date: 20220423
  Serious: No
  Sender: FDA-Public Use
  Company Number: US-BIOVITRUM-2021US11832

PATIENT
  Age: 47 Year
  Sex: Female

DRUGS (1)
  1. KINERET [Suspect]
     Active Substance: ANAKINRA
     Indication: Cryopyrin associated periodic syndrome
     Route: 058
     Dates: start: 20211106

REACTIONS (6)
  - Erythema [Unknown]
  - Restless legs syndrome [Unknown]
  - Nasopharyngitis [Unknown]
  - Psoriasis [Unknown]
  - Pruritus [Unknown]
  - Off label use [Unknown]

NARRATIVE: CASE EVENT DATE: 20211106
